FAERS Safety Report 8909298 (Version 1)
Quarter: 2012Q4

REPORT INFORMATION
  Report Type: 
  Country: US (occurrence: US)
  Receive Date: 20121114
  Receipt Date: 20121114
  Transmission Date: 20130627
  Serious: Yes (Other)
  Sender: FDA-Public Use
  Company Number: US-AMGEN-USASP2012072341

PATIENT
  Sex: Female

DRUGS (3)
  1. ENBREL [Suspect]
     Indication: RHEUMATOID ARTHRITIS
     Dosage: UNK
     Dates: start: 20040914
  2. METHOTREXATE [Concomitant]
     Dosage: UNK
     Dates: start: 1996
  3. AZATHIOPRINE [Concomitant]
     Dosage: 50 mg, UNK
     Route: 048

REACTIONS (5)
  - Muscular dystrophy [Not Recovered/Not Resolved]
  - Osteomyelitis [Recovered/Resolved]
  - Rheumatoid arthritis [Unknown]
  - Myopathy [Not Recovered/Not Resolved]
  - Tooth infection [Recovered/Resolved]
